FAERS Safety Report 22989626 (Version 3)
Quarter: 2023Q4

REPORT INFORMATION
  Report Type: Spontaneous
  Country: JP (occurrence: JP)
  Receive Date: 20230927
  Receipt Date: 20231214
  Transmission Date: 20240109
  Serious: Yes (Death, Life-Threatening, Other)
  Sender: FDA-Public Use
  Company Number: JP-TAKEDA-2023TJP012716

PATIENT
  Age: 4 Year
  Sex: Female
  Weight: 9.4 kg

DRUGS (11)
  1. TEDUGLUTIDE [Suspect]
     Active Substance: TEDUGLUTIDE
     Indication: Short-bowel syndrome
     Dosage: 0.4 MILLIGRAM, QD
     Route: 058
     Dates: start: 20221004, end: 20230920
  2. TEDUGLUTIDE [Suspect]
     Active Substance: TEDUGLUTIDE
     Indication: Short-bowel syndrome
     Dosage: 0.4 MILLIGRAM, QD
     Route: 058
     Dates: start: 20221004, end: 20230920
  3. TEDUGLUTIDE [Suspect]
     Active Substance: TEDUGLUTIDE
     Indication: Short-bowel syndrome
     Dosage: 0.4 MILLIGRAM, QD
     Route: 058
     Dates: start: 20221004, end: 20230920
  4. TEDUGLUTIDE [Suspect]
     Active Substance: TEDUGLUTIDE
     Indication: Short-bowel syndrome
     Dosage: 0.4 MILLIGRAM, QD
     Route: 058
     Dates: start: 20221004, end: 20230920
  5. FUROSEMIDE [Concomitant]
     Active Substance: FUROSEMIDE
     Dosage: UNK
     Route: 065
  6. SPIRONOLACTONE [Concomitant]
     Active Substance: SPIRONOLACTONE
     Dosage: UNK
     Route: 065
  7. ENALAPRIL MALEATE [Concomitant]
     Active Substance: ENALAPRIL MALEATE
     Dosage: UNK
     Route: 065
  8. URSODIOL [Concomitant]
     Active Substance: URSODIOL
     Dosage: UNK
     Route: 065
  9. BISOPROLOL FUMARATE [Concomitant]
     Active Substance: BISOPROLOL FUMARATE
     Dosage: UNK
     Route: 065
  10. CARVEDILOL [Concomitant]
     Active Substance: CARVEDILOL
     Dosage: UNK
     Route: 065
  11. SAMSCA [Concomitant]
     Active Substance: TOLVAPTAN
     Dosage: UNK
     Route: 065

REACTIONS (4)
  - Pulmonary haemorrhage [Unknown]
  - Multiple organ dysfunction syndrome [Fatal]
  - Endocarditis [Unknown]
  - Pulmonary artery aneurysm [Unknown]

NARRATIVE: CASE EVENT DATE: 20230701
